FAERS Safety Report 14662440 (Version 3)
Quarter: 2019Q1

REPORT INFORMATION
  Report Type: Spontaneous
  Country: IT (occurrence: IT)
  Receive Date: 20180321
  Receipt Date: 20190122
  Transmission Date: 20190417
  Serious: Yes (Hospitalization, Other)
  Sender: FDA-Public Use
  Company Number: IT-ACCORD-064537

PATIENT
  Age: 51 Year
  Sex: Female

DRUGS (4)
  1. CETIRIZINE/PSEUDOEPHEDRINE [Suspect]
     Active Substance: CETIRIZINE HYDROCHLORIDE\PSEUDOEPHEDRINE HYDROCHLORIDE
     Dosage: 12 DF, TOTAL (STRENGTH 5 MG/120MG) ; IN TOTAL
     Route: 048
     Dates: start: 20170805, end: 20170805
  2. AERIUS (DESLORATADINE) [Suspect]
     Active Substance: DESLORATADINE
     Dosage: 3 DF, TOTAL (STRENGTH: 5 MG) ; IN TOTAL
     Route: 048
     Dates: start: 20170805, end: 20170805
  3. QUETIAPINE. [Suspect]
     Active Substance: QUETIAPINE
     Dosage: STRENGTH: 100MG,60 DF, ONCE
     Route: 048
     Dates: start: 20170805, end: 20170805
  4. VENLAFAXINE/VENLAFAXINE HYDROCHLORIDE [Suspect]
     Active Substance: VENLAFAXINE HYDROCHLORIDE
     Dosage: 5 DF, TOTAL (STRENGTH: 150 MG) ; IN TOTAL
     Route: 048
     Dates: start: 20170805, end: 20170805

REACTIONS (2)
  - Coma [Recovered/Resolved]
  - Drug abuse [Unknown]

NARRATIVE: CASE EVENT DATE: 20170805
